FAERS Safety Report 9112617 (Version 1)
Quarter: 2013Q1

REPORT INFORMATION
  Report Type: Spontaneous
  Country: US (occurrence: US)
  Receive Date: 20130211
  Receipt Date: 20130211
  Transmission Date: 20140127
  Serious: Yes (Other)
  Sender: FDA-Public Use
  Company Number: PHHY2012US087906

PATIENT
  Age: 90 Year
  Sex: Male

DRUGS (6)
  1. HYDRALAZINE [Suspect]
     Dosage: UNK UKN, UNK
  2. HYDRALAZINE [Suspect]
     Dosage: DOSE INCREASED
  3. CLOBETASOL [Concomitant]
     Route: 061
  4. BENADRYL [Concomitant]
     Route: 048
  5. PREDNISONE [Concomitant]
     Indication: SKIN LESION
     Dosage: 1 MG/KG, UNK
     Route: 048
  6. HYDROXYZINE [Concomitant]
     Indication: SKIN LESION
     Dosage: 10 MG, TID

REACTIONS (1)
  - Cardiac failure congestive [Unknown]
